FAERS Safety Report 8941504 (Version 1)
Quarter: 2012Q4

REPORT INFORMATION
  Report Type: 
  Country: CA (occurrence: CA)
  Receive Date: 20121203
  Receipt Date: 20121203
  Transmission Date: 20130627
  Serious: Yes (Other)
  Sender: FDA-Public Use
  Company Number: CA-B.I. PHARMACEUTICALS,INC./RIDGEFIELD-2012-CN-02397CN

PATIENT
  Age: 77 Year
  Sex: Male
  Weight: 97 kg

DRUGS (14)
  1. PRADAX [Suspect]
     Dosage: 300 mg
     Route: 048
  2. APO FOLIC ACID [Concomitant]
     Route: 065
  3. APO FUROSEMIDE [Concomitant]
     Route: 065
  4. APO-METFORMIN [Concomitant]
     Route: 065
  5. APO-METOPROLOL [Concomitant]
     Route: 065
  6. APO-SOTALOL [Concomitant]
     Route: 065
  7. APO-WARFARIN [Concomitant]
     Route: 065
  8. ASPIRIN [Concomitant]
     Route: 065
  9. ATACAND [Concomitant]
     Route: 065
  10. MULTIVITAMINE(S) [Concomitant]
     Route: 065
  11. NITRO-DUR [Concomitant]
     Dosage: 0.4 mg/hour
     Route: 065
  12. PARIET [Concomitant]
     Route: 065
  13. SPIRIVA [Concomitant]
     Route: 065
  14. ZOCOR [Concomitant]
     Route: 065

REACTIONS (1)
  - Oesophageal ulcer [Recovered/Resolved]
